FAERS Safety Report 5245469-8 (Version None)
Quarter: 2007Q1

REPORT INFORMATION
  Report Type: 
  Country: None (occurrence: None)
  Receive Date: 20070223
  Receipt Date: 20070216
  Transmission Date: 20070707
  Serious: Yes (Hospitalization)
  Sender: FDA-Public Use
  Company Number: HU-ELI_LILLY_AND_COMPANY-HU200702001116

PATIENT
  Age: 47 Year
  Sex: Female
  Weight: 70 kg

DRUGS (3)
  1. GEMCITABINE HCL [Suspect]
     Indication: LUNG NEOPLASM MALIGNANT
     Dosage: 2200 MG, OTHER
     Route: 042
     Dates: start: 20070108
  2. CISPLATIN [Concomitant]
     Indication: LUNG NEOPLASM MALIGNANT
     Dosage: 120 MG, OTHER
     Route: 042
     Dates: start: 20070108
  3. CISPLATIN [Concomitant]
     Dosage: 120 MG, OTHER
     Route: 042
     Dates: start: 20070206

REACTIONS (3)
  - ANAEMIA [None]
  - METASTASES TO THE MEDIASTINUM [None]
  - URTICARIA [None]
